FAERS Safety Report 17751392 (Version 1)
Quarter: 2020Q2

REPORT INFORMATION
  Report Type: Spontaneous
  Country: US (occurrence: US)
  Receive Date: 20200506
  Receipt Date: 20200506
  Transmission Date: 20200714
  Serious: No
  Sender: FDA-Public Use
  Company Number: None

PATIENT
  Age: 53 Year
  Sex: Female

DRUGS (6)
  1. IRBESARTAN TAB 150MG [Concomitant]
  2. DULOXETINE CAP 60MG [Concomitant]
  3. TRAMADOL HCL TAB 50MG [Concomitant]
  4. ORENCIA [Suspect]
     Active Substance: ABATACEPT
     Dosage: ?          OTHER FREQUENCY:EVERY 7 DAYS;?
     Route: 058
  5. IBUPROPION TAB 75MG [Concomitant]
  6. CELECOXIB CAP 200MG [Concomitant]

REACTIONS (1)
  - Condition aggravated [None]

NARRATIVE: CASE EVENT DATE: 20200405
